FAERS Safety Report 4422229-9 (Version None)
Quarter: 2004Q3

REPORT INFORMATION
  Report Type: 
  Country: None (occurrence: None)
  Receive Date: 20040810
  Receipt Date: 20040730
  Transmission Date: 20050211
  Serious: Yes (Hospitalization)
  Sender: FDA-Public Use
  Company Number: FR-ROCHE-376282

PATIENT
  Age: 45 Year
  Sex: Male
  Weight: 51 kg

DRUGS (7)
  1. ROCEPHIN [Suspect]
     Dosage: STRENGTH REPORTED AS 2G/40ML.
     Route: 042
     Dates: start: 20040504, end: 20040520
  2. PREDNISONE TAB [Suspect]
     Indication: DRUG USE FOR UNKNOWN INDICATION
     Route: 048
     Dates: start: 20040517, end: 20040526
  3. SOLU-MEDROL [Suspect]
     Dosage: FORMULATION REPORTED AS LYOPHILISED.
     Route: 042
     Dates: start: 20040504, end: 20040516
  4. ATHYMIL [Suspect]
     Indication: DRUG USE FOR UNKNOWN INDICATION
     Route: 048
     Dates: start: 20040518, end: 20040526
  5. TERCIAN [Suspect]
     Indication: DRUG USE FOR UNKNOWN INDICATION
     Route: 048
     Dates: start: 20040511, end: 20040524
  6. HYPNOVEL [Concomitant]
     Indication: DRUG USE FOR UNKNOWN INDICATION
     Route: 065
     Dates: start: 20040510, end: 20040517
  7. BACTRIM [Concomitant]
     Route: 042
     Dates: start: 20040509

REACTIONS (3)
  - BONE MARROW DEPRESSION [None]
  - COLITIS [None]
  - SEPSIS [None]
